FAERS Safety Report 24741156 (Version 1)
Quarter: 2024Q4

REPORT INFORMATION
  Report Type: Report from Study
  Country: CA (occurrence: CA)
  Receive Date: 20241217
  Receipt Date: 20241217
  Transmission Date: 20250115
  Serious: Yes (Death, Other)
  Sender: SANDOZ
  Company Number: CA-SANDOZ-SDZ2023CA041482

PATIENT
  Sex: Female

DRUGS (2)
  1. HYRIMOZ [Suspect]
     Active Substance: ADALIMUMAB-ADAZ
     Indication: Hidradenitis
     Dosage: 40 MG (PRE-FILLED PEN)
     Route: 058
     Dates: start: 20211108
  2. HYRIMOZ [Suspect]
     Active Substance: ADALIMUMAB-ADAZ
     Dosage: 80 MG, QW (PRE-FILLED PEN)
     Route: 058
     Dates: start: 20211108

REACTIONS (3)
  - Death [Fatal]
  - COVID-19 [Unknown]
  - Off label use [Unknown]
